FAERS Safety Report 20518261 (Version 1)
Quarter: 2022Q1

REPORT INFORMATION
  Report Type: Spontaneous
  Country: US (occurrence: None)
  Receive Date: 20220224
  Receipt Date: 20220224
  Transmission Date: 20220423
  Serious: Yes (Death)
  Sender: FDA-Public Use
  Company Number: None

PATIENT
  Age: 85 Year
  Sex: Female
  Weight: 70 kg

DRUGS (1)
  1. TOCILIZUMAB [Suspect]
     Active Substance: TOCILIZUMAB
     Indication: COVID-19
     Dates: start: 20220122, end: 20220122

REACTIONS (11)
  - Progressive multifocal leukoencephalopathy [None]
  - COVID-19 pneumonia [None]
  - Pneumonia fungal [None]
  - Septic shock [None]
  - Escherichia bacteraemia [None]
  - Urinary tract infection [None]
  - Acute kidney injury [None]
  - Lactic acidosis [None]
  - Hyperammonaemia [None]
  - Disseminated intravascular coagulation [None]
  - Aspiration [None]

NARRATIVE: CASE EVENT DATE: 20220218
